FAERS Safety Report 15457178 (Version 1)
Quarter: 2018Q4

REPORT INFORMATION
  Report Type: Spontaneous
  Country: IR (occurrence: IR)
  Receive Date: 20181002
  Receipt Date: 20181002
  Transmission Date: 20190204
  Serious: Yes (Other)
  Sender: FDA-Public Use
  Company Number: IR-MALLINCKRODT-T201804307

PATIENT
  Age: 25 Year

DRUGS (1)
  1. PAMELOR [Suspect]
     Active Substance: NORTRIPTYLINE HYDROCHLORIDE
     Dosage: 20-25 TABLETS
     Route: 065

REACTIONS (2)
  - Tachycardia [Unknown]
  - Toxicity to various agents [Unknown]
